APPROVED DRUG PRODUCT: DEXLANSOPRAZOLE
Active Ingredient: DEXLANSOPRAZOLE
Strength: 60MG
Dosage Form/Route: CAPSULE, DELAYED RELEASE;ORAL
Application: A202294 | Product #001 | TE Code: AB
Applicant: PH HEALTH LTD
Approved: Apr 19, 2017 | RLD: No | RS: No | Type: RX